FAERS Safety Report 5834508-9 (Version None)
Quarter: 2008Q3

REPORT INFORMATION
  Report Type: 
  Country: None (occurrence: None)
  Receive Date: 20080805
  Receipt Date: 20080724
  Transmission Date: 20090109
  Serious: Yes (Other)
  Sender: FDA-Public Use
  Company Number: US-PFIZER INC-2008061888

PATIENT
  Sex: Female
  Weight: 44.5 kg

DRUGS (1)
  1. DEPO-MEDROL [Suspect]
     Indication: ARTHRALGIA

REACTIONS (1)
  - INJECTION SITE NECROSIS [None]
